FAERS Safety Report 8607273-X (Version None)
Quarter: 2012Q3

REPORT INFORMATION
  Report Type: 
  Country: None (occurrence: None)
  Receive Date: 20120821
  Receipt Date: 20120815
  Transmission Date: 20120928
  Serious: Yes (Death, Hospitalization, Other)
  Sender: FDA-Public Use
  Company Number: US-GENZYME-FLUD-1001547

PATIENT
  Age: 45 Year
  Sex: Female

DRUGS (10)
  1. FLUDARA [Suspect]
     Indication: MYCOSIS FUNGOIDES
     Dosage: 2 CYCLES
     Route: 065
  2. CAMPATH [Suspect]
     Indication: MYCOSIS FUNGOIDES
     Dosage: UNK
     Route: 065
     Dates: start: 20060601
  3. ETOPOSIDE [Suspect]
     Indication: MYCOSIS FUNGOIDES
     Dosage: UNK
     Route: 065
  4. DEXAMETHASONE [Suspect]
     Indication: MYCOSIS FUNGOIDES
     Dosage: UNK
     Route: 065
  5. VINCRISTINE [Suspect]
     Indication: MYCOSIS FUNGOIDES
     Dosage: UNK
     Route: 065
     Dates: start: 20060101
  6. CISPLATIN [Suspect]
     Indication: MYCOSIS FUNGOIDES
     Dosage: UNK
     Route: 065
  7. CYCLOPHOSPHAMIDE [Suspect]
     Indication: MYCOSIS FUNGOIDES
     Dosage: UNK
     Route: 065
     Dates: start: 20060101
  8. PREDNISONE [Suspect]
     Indication: MYCOSIS FUNGOIDES
     Dosage: UNK
     Route: 065
     Dates: start: 20060101
  9. IFOSFAMIDE [Suspect]
     Indication: MYCOSIS FUNGOIDES
     Dosage: UNK
     Route: 065
  10. DAUNORUBICIN HCL [Suspect]
     Indication: MYCOSIS FUNGOIDES
     Dosage: UNK
     Route: 065
     Dates: start: 20060101

REACTIONS (5)
  - SPLENIC INFECTION FUNGAL [None]
  - PNEUMONIA CYTOMEGALOVIRAL [None]
  - EPSTEIN-BARR VIRUS INFECTION [None]
  - GRANULOMA [None]
  - MYCOSIS FUNGOIDES REFRACTORY [None]
